FAERS Safety Report 13189431 (Version 1)
Quarter: 2017Q1

REPORT INFORMATION
  Report Type: Spontaneous
  Country: FR (occurrence: FR)
  Receive Date: 20170206
  Receipt Date: 20170206
  Transmission Date: 20170428
  Serious: Yes (Hospitalization)
  Sender: FDA-Public Use
  Company Number: FR-LANNETT COMPANY, INC.-FR-2017LAN000445

PATIENT
  Age: 15 Year
  Sex: Male

DRUGS (2)
  1. CODEINE SULFATE. [Suspect]
     Active Substance: CODEINE SULFATE
     Indication: PRODUCT USED FOR UNKNOWN INDICATION
     Dosage: 300 ML, SINGLE [EUPHON SYRUP]
     Route: 048
  2. PROMETHAZINE HYDROCHLORIDE. [Suspect]
     Active Substance: PROMETHAZINE HYDROCHLORIDE
     Indication: PRODUCT USED FOR UNKNOWN INDICATION
     Dosage: 250 MG, SINGLE
     Route: 048

REACTIONS (4)
  - Drug dependence [Unknown]
  - Toxicity to various agents [Unknown]
  - Anxiety [Unknown]
  - Altered state of consciousness [Unknown]
